FAERS Safety Report 18675100 (Version 6)
Quarter: 2021Q2

REPORT INFORMATION
  Report Type: Report from Study
  Country: AU (occurrence: AU)
  Receive Date: 20201229
  Receipt Date: 20210408
  Transmission Date: 20210717
  Serious: Yes (Other)
  Sender: FDA-Public Use
  Company Number: NVSC2020AU340289

PATIENT
  Age: 69 Year
  Sex: Female

DRUGS (2)
  1. MAYZENT [Suspect]
     Active Substance: SIPONIMOD
     Dosage: 2 MG, QD (ONCE DAILY REDUCED FREQUENCY TO MONDAY TO FRIDAY)
     Route: 048
     Dates: start: 20201227, end: 20210323
  2. MAYZENT [Suspect]
     Active Substance: SIPONIMOD
     Indication: SECONDARY PROGRESSIVE MULTIPLE SCLEROSIS
     Dosage: 0.25 MG, QD
     Route: 048
     Dates: start: 20201221

REACTIONS (8)
  - Syncope [Recovering/Resolving]
  - Balance disorder [Recovering/Resolving]
  - Diarrhoea [Recovering/Resolving]
  - Lymphocyte count decreased [Unknown]
  - Fatigue [Unknown]
  - Gait disturbance [Recovering/Resolving]
  - Dizziness [Recovering/Resolving]
  - Malaise [Recovering/Resolving]

NARRATIVE: CASE EVENT DATE: 20201221
